FAERS Safety Report 21994943 (Version 1)
Quarter: 2023Q1

REPORT INFORMATION
  Report Type: Spontaneous
  Country: US (occurrence: None)
  Receive Date: 20230214
  Receipt Date: 20230214
  Transmission Date: 20230417
  Serious: Yes (Other)
  Sender: FDA-Public Use
  Company Number: None

PATIENT
  Age: 56 Year
  Sex: Female
  Weight: 70.65 kg

DRUGS (1)
  1. ICY HOT LIDOCAINE NO-MESS [Suspect]
     Active Substance: LIDOCAINE HYDROCHLORIDE
     Indication: Arthralgia
     Dosage: OTHER QUANTITY : 1 1;?FREQUENCY : AT BEDTIME;?
     Route: 061
     Dates: start: 20230206, end: 20230209

REACTIONS (4)
  - Drug hypersensitivity [None]
  - Application site burn [None]
  - Application site vesicles [None]
  - Application site discolouration [None]

NARRATIVE: CASE EVENT DATE: 20230211
